FAERS Safety Report 15714559 (Version 7)
Quarter: 2022Q2

REPORT INFORMATION
  Report Type: Report from Study
  Country: JP (occurrence: JP)
  Receive Date: 20181212
  Receipt Date: 20220406
  Transmission Date: 20220721
  Serious: Yes (Hospitalization, Other)
  Sender: FDA-Public Use
  Company Number: JP-JT-EVA201803859GILEAD-001

PATIENT
  Age: 40 Year
  Sex: Male

DRUGS (12)
  1. EMTRICITABINE\TENOFOVIR [Suspect]
     Active Substance: EMTRICITABINE\TENOFOVIR
     Indication: HIV infection
     Dosage: 1 DOSAGE FORM, QD
     Route: 048
     Dates: start: 20170324, end: 20200604
  2. TIVICAY [Suspect]
     Active Substance: DOLUTEGRAVIR SODIUM
     Indication: HIV infection
     Dosage: 50 MG, QD
     Route: 048
     Dates: start: 20161222, end: 20200604
  3. ETIZOLAM [Suspect]
     Active Substance: ETIZOLAM
     Indication: Product used for unknown indication
     Dosage: LARGE AMOUNT TAKEN
     Route: 065
     Dates: start: 20170529, end: 20170529
  4. ETIZOLAM [Suspect]
     Active Substance: ETIZOLAM
     Dosage: UNK
     Route: 048
     Dates: start: 20170401, end: 20170601
  5. PENTAMIDINE [Concomitant]
     Active Substance: PENTAMIDINE
     Indication: Prophylaxis
     Route: 055
     Dates: start: 20170401, end: 20170605
  6. ZOLPIDEM TARTRATE [Concomitant]
     Active Substance: ZOLPIDEM TARTRATE
     Route: 048
     Dates: start: 20170401, end: 20170601
  7. ETIZOLAM [Concomitant]
     Active Substance: ETIZOLAM
     Route: 048
     Dates: start: 20170401, end: 20170601
  8. ATOVAQUONE [Concomitant]
     Active Substance: ATOVAQUONE
     Indication: Prophylaxis
     Dosage: UNK
     Route: 048
     Dates: start: 20170606, end: 201805
  9. HALCION [Concomitant]
     Active Substance: TRIAZOLAM
     Route: 048
     Dates: end: 20170601
  10. HALCION [Concomitant]
     Active Substance: TRIAZOLAM
     Route: 048
     Dates: end: 20170601
  11. BROTIZOLAM [Concomitant]
     Active Substance: BROTIZOLAM
     Route: 048
     Dates: end: 20170601
  12. BROTIZOLAM [Concomitant]
     Active Substance: BROTIZOLAM
     Dosage: UNK
     Route: 048
     Dates: end: 20170601

REACTIONS (4)
  - Suicidal ideation [Recovering/Resolving]
  - Spondylitis [Recovered/Resolved]
  - Herpes zoster [Recovered/Resolved]
  - Treatment noncompliance [Not Recovered/Not Resolved]

NARRATIVE: CASE EVENT DATE: 20170523
